FAERS Safety Report 4964364-2 (Version None)
Quarter: 2006Q1

REPORT INFORMATION
  Report Type: 
  Country: None (occurrence: None)
  Receive Date: 20060331
  Receipt Date: 20060314
  Transmission Date: 20060701
  Serious: Yes (Other)
  Sender: FDA-Public Use
  Company Number: US200603004004

PATIENT
  Age: 70 Year
  Sex: Female

DRUGS (1)
  1. EVISTA [Suspect]
     Indication: OSTEOPOROSIS
     Dosage: UNK, ORAL
     Route: 048

REACTIONS (3)
  - BREAST CANCER FEMALE [None]
  - BREAST CANCER STAGE I [None]
  - OESTROGEN RECEPTOR ASSAY POSITIVE [None]
